FAERS Safety Report 20122834 (Version 1)
Quarter: 2021Q4

REPORT INFORMATION
  Report Type: Spontaneous
  Country: US (occurrence: None)
  Receive Date: 20211129
  Receipt Date: 20211129
  Transmission Date: 20220304
  Serious: No
  Sender: FDA-Public Use
  Company Number: 2021A748254

PATIENT
  Age: 79 Year
  Sex: Female
  Weight: 81.6 kg

DRUGS (3)
  1. PULMICORT FLEXHALER [Suspect]
     Active Substance: BUDESONIDE
     Dosage: 180
     Route: 055
  2. SPIRIVA RESPIMAT [Concomitant]
     Active Substance: TIOTROPIUM BROMIDE
     Dosage: 6 MONTH
  3. COMBIVENT [Concomitant]
     Active Substance: ALBUTEROL SULFATE\IPRATROPIUM BROMIDE
     Dosage: 1 PUFF EVERY 6 HOURS AS NEEDED

REACTIONS (6)
  - Dyspnoea [Unknown]
  - Incorrect dose administered by device [Unknown]
  - Product prescribing error [Unknown]
  - Intentional device misuse [Unknown]
  - Drug ineffective [Unknown]
  - Device defective [Unknown]
